FAERS Safety Report 7107358-3 (Version None)
Quarter: 2010Q4

REPORT INFORMATION
  Report Type: 
  Country: None (occurrence: None)
  Receive Date: 20101111
  Receipt Date: 20101111
  Transmission Date: 20110411
  Serious: Yes (Disabling, Other)
  Sender: FDA-Public Use
  Company Number: None

PATIENT
  Age: 25 Year
  Sex: Female
  Weight: 47.6277 kg

DRUGS (1)
  1. CHANTIX [Suspect]
     Indication: SMOKING CESSATION THERAPY
     Dosage: 1 MG TWICE A DAY PO
     Route: 048
     Dates: start: 20101012, end: 20101028

REACTIONS (10)
  - AMNESIA [None]
  - ANGER [None]
  - ANXIETY [None]
  - DEPRESSION [None]
  - HOSTILITY [None]
  - INSOMNIA [None]
  - JUDGEMENT IMPAIRED [None]
  - PANIC ATTACK [None]
  - SOCIAL PROBLEM [None]
  - THINKING ABNORMAL [None]
